FAERS Safety Report 4813571-8 (Version None)
Quarter: 2005Q4

REPORT INFORMATION
  Report Type: 
  Country: None (occurrence: None)
  Receive Date: 20051028
  Receipt Date: 20050225
  Transmission Date: 20060501
  Serious: Yes (Life-Threatening, Hospitalization, Other)
  Sender: FDA-Public Use
  Company Number: US-GLAXOSMITHKLINE-A0547383A

PATIENT
  Age: 11 Year
  Sex: Female
  Weight: 29 kg

DRUGS (3)
  1. ADVAIR DISKUS 100/50 [Suspect]
     Indication: ASTHMA
     Dosage: 1PUFF TWICE PER DAY
     Route: 055
     Dates: start: 20050101
  2. RITONAVIR [Suspect]
     Indication: HIV INFECTION
     Dosage: 5CAP TWICE PER DAY
     Route: 048
     Dates: start: 20040101, end: 20050101
  3. UNSPECIFIED MEDICATION [Concomitant]

REACTIONS (3)
  - ASTHMA [None]
  - CUSHING'S SYNDROME [None]
  - DRUG INTERACTION [None]
